FAERS Safety Report 14710273 (Version 1)
Quarter: 2018Q2

REPORT INFORMATION
  Report Type: Spontaneous
  Country: US (occurrence: US)
  Receive Date: 20180403
  Receipt Date: 20180403
  Transmission Date: 20180711
  Serious: Yes (Other)
  Sender: FDA-Public Use
  Company Number: PHHY2018US051114

PATIENT
  Age: 60 Year
  Sex: Female

DRUGS (1)
  1. PACLITAXEL. [Suspect]
     Active Substance: PACLITAXEL
     Indication: UTERINE CANCER
     Dosage: 80 MG/M2, QW
     Route: 065
     Dates: start: 201504

REACTIONS (4)
  - Malignant neoplasm progression [Recovering/Resolving]
  - Pulmonary embolism [Unknown]
  - Uterine cancer [Recovering/Resolving]
  - Hydronephrosis [Unknown]
